FAERS Safety Report 10077785 (Version 3)
Quarter: 2014Q3

REPORT INFORMATION
  Report Type: Spontaneous
  Country: BR (occurrence: BR)
  Receive Date: 20140414
  Receipt Date: 20140723
  Transmission Date: 20150326
  Serious: Yes (Death, Other)
  Sender: FDA-Public Use
  Company Number: BR-AMGEN INC.-BRASP2014026258

PATIENT
  Age: 64 Year
  Sex: Female
  Weight: 56 kg

DRUGS (5)
  1. ARAVA [Concomitant]
     Active Substance: LEFLUNOMIDE
     Dosage: UNK
     Dates: start: 201210, end: 201403
  2. ENBREL [Suspect]
     Active Substance: ETANERCEPT
     Indication: RHEUMATOID ARTHRITIS
     Dosage: 50 MG, 1X/WEEK
     Route: 058
     Dates: start: 201308, end: 201404
  3. PREDNISONE. [Concomitant]
     Active Substance: PREDNISONE
     Dosage: 20 MG (ONE TABLET), DAILY
  4. ALENDRONATE SODIUM. [Concomitant]
     Active Substance: ALENDRONATE SODIUM
     Dosage: UNSPECIFIED DOSAGE, 1X/WEEK
  5. OMEPRAZOLE. [Concomitant]
     Active Substance: OMEPRAZOLE
     Indication: ABDOMINAL DISCOMFORT
     Dosage: 40 MG, 2X/DAY (MORNING AND NIGHT)

REACTIONS (5)
  - Colon neoplasm [Fatal]
  - Diarrhoea [Unknown]
  - Septic shock [Fatal]
  - Multi-organ failure [Fatal]
  - Peritonitis [Fatal]
